FAERS Safety Report 9108193 (Version 1)
Quarter: 2013Q1

REPORT INFORMATION
  Report Type: Spontaneous
  Country: IT (occurrence: IT)
  Receive Date: 20130221
  Receipt Date: 20130221
  Transmission Date: 20140127
  Serious: Yes (Other)
  Sender: FDA-Public Use
  Company Number: IT-MYLANLABS-2013S1003009

PATIENT
  Age: 29 Year
  Sex: Female

DRUGS (2)
  1. AZITHROMYCIN [Suspect]
     Indication: BRONCHITIS
     Route: 048
     Dates: start: 20130111, end: 20130113
  2. AMOXICILLIN/CLAVULANIC ACID [Concomitant]
     Indication: BRONCHITIS
     Dates: start: 20130106, end: 20130113

REACTIONS (2)
  - Vomiting [Recovering/Resolving]
  - Gastritis [Recovering/Resolving]
